FAERS Safety Report 10223595 (Version 2)
Quarter: 2014Q2

REPORT INFORMATION
  Report Type: Spontaneous
  Country: US (occurrence: US)
  Receive Date: 20140609
  Receipt Date: 20140609
  Transmission Date: 20141212
  Serious: No
  Sender: FDA-Public Use
  Company Number: US-DRREDDYS-USA/USA/13/0035484

PATIENT
  Age: 88 Year
  Sex: Female
  Weight: 78.01 kg

DRUGS (1)
  1. FEXOFENADINE HCL  OTC [Suspect]
     Indication: PRODUCT USED FOR UNKNOWN INDICATION
     Route: 048
     Dates: start: 20131106

REACTIONS (4)
  - Choking [Recovered/Resolved]
  - Oropharyngeal pain [Recovered/Resolved]
  - Foreign body [Unknown]
  - Product size issue [Unknown]
